FAERS Safety Report 24339670 (Version 24)
Quarter: 2025Q2

REPORT INFORMATION
  Report Type: Spontaneous
  Country: GB (occurrence: GB)
  Receive Date: 20240919
  Receipt Date: 20250617
  Transmission Date: 20250716
  Serious: Yes (Other)
  Sender: ROCHE
  Company Number: None

PATIENT
  Age: 41 Year
  Sex: Female

DRUGS (401)
  1. RITUXIMAB [Suspect]
     Active Substance: RITUXIMAB
     Indication: Product used for unknown indication
     Route: 050
  2. RITUXIMAB [Suspect]
     Active Substance: RITUXIMAB
     Route: 065
  3. RITUXIMAB [Suspect]
     Active Substance: RITUXIMAB
     Route: 065
  4. RITUXIMAB [Suspect]
     Active Substance: RITUXIMAB
     Route: 065
  5. RITUXIMAB [Suspect]
     Active Substance: RITUXIMAB
     Route: 065
  6. RITUXIMAB [Suspect]
     Active Substance: RITUXIMAB
     Route: 065
  7. RITUXIMAB [Suspect]
     Active Substance: RITUXIMAB
     Route: 050
  8. RITUXIMAB [Suspect]
     Active Substance: RITUXIMAB
     Route: 065
  9. RITUXIMAB [Suspect]
     Active Substance: RITUXIMAB
     Route: 065
  10. RITUXIMAB [Suspect]
     Active Substance: RITUXIMAB
     Route: 050
  11. RITUXIMAB [Suspect]
     Active Substance: RITUXIMAB
     Route: 050
  12. RITUXIMAB [Suspect]
     Active Substance: RITUXIMAB
     Route: 050
  13. RITUXIMAB [Suspect]
     Active Substance: RITUXIMAB
     Route: 050
  14. RITUXIMAB [Suspect]
     Active Substance: RITUXIMAB
     Route: 050
  15. RITUXIMAB [Suspect]
     Active Substance: RITUXIMAB
     Route: 050
  16. RITUXIMAB [Suspect]
     Active Substance: RITUXIMAB
     Route: 050
  17. RITUXIMAB [Suspect]
     Active Substance: RITUXIMAB
     Route: 050
  18. RITUXIMAB [Suspect]
     Active Substance: RITUXIMAB
     Route: 050
  19. RITUXIMAB [Suspect]
     Active Substance: RITUXIMAB
     Route: 050
  20. RITUXIMAB [Suspect]
     Active Substance: RITUXIMAB
     Route: 050
  21. RITUXIMAB [Suspect]
     Active Substance: RITUXIMAB
     Route: 050
  22. RITUXIMAB [Suspect]
     Active Substance: RITUXIMAB
     Route: 050
  23. RITUXIMAB [Suspect]
     Active Substance: RITUXIMAB
     Route: 050
  24. RITUXIMAB [Suspect]
     Active Substance: RITUXIMAB
     Route: 050
  25. RITUXIMAB [Suspect]
     Active Substance: RITUXIMAB
     Route: 050
  26. RITUXIMAB [Suspect]
     Active Substance: RITUXIMAB
     Route: 050
  27. RITUXIMAB [Suspect]
     Active Substance: RITUXIMAB
     Route: 050
  28. RITUXIMAB [Suspect]
     Active Substance: RITUXIMAB
     Route: 050
  29. MYCOPHENOLATE MOFETIL [Suspect]
     Active Substance: MYCOPHENOLATE MOFETIL
     Indication: Product used for unknown indication
     Route: 065
  30. MYCOPHENOLATE MOFETIL [Suspect]
     Active Substance: MYCOPHENOLATE MOFETIL
     Route: 065
  31. MYCOPHENOLATE MOFETIL [Suspect]
     Active Substance: MYCOPHENOLATE MOFETIL
     Route: 065
  32. MYCOPHENOLATE MOFETIL [Suspect]
     Active Substance: MYCOPHENOLATE MOFETIL
     Route: 065
  33. MYCOPHENOLATE MOFETIL [Suspect]
     Active Substance: MYCOPHENOLATE MOFETIL
     Route: 065
  34. MYCOPHENOLATE MOFETIL [Suspect]
     Active Substance: MYCOPHENOLATE MOFETIL
     Route: 065
  35. MYCOPHENOLATE MOFETIL [Suspect]
     Active Substance: MYCOPHENOLATE MOFETIL
     Route: 065
  36. OMALIZUMAB [Suspect]
     Active Substance: OMALIZUMAB
     Indication: Chronic spontaneous urticaria
     Dosage: 200 MG, QD (100 MG, BID )
     Route: 065
  37. OMALIZUMAB [Suspect]
     Active Substance: OMALIZUMAB
     Route: 065
  38. OMALIZUMAB [Suspect]
     Active Substance: OMALIZUMAB
     Dosage: 450 MG, Q4W (4 WEEKLY)
     Route: 065
  39. OMALIZUMAB [Suspect]
     Active Substance: OMALIZUMAB
     Dosage: 450 MG, Q4W (4 WEEKLY)
     Route: 065
  40. OMALIZUMAB [Suspect]
     Active Substance: OMALIZUMAB
     Dosage: 450 MG, Q4W (4 WEEKLY)
     Route: 065
  41. OMALIZUMAB [Suspect]
     Active Substance: OMALIZUMAB
     Route: 065
  42. OMALIZUMAB [Suspect]
     Active Substance: OMALIZUMAB
     Dosage: 450 MG, Q4W, (1 DOSE PER 4W)
     Route: 065
  43. OMALIZUMAB [Suspect]
     Active Substance: OMALIZUMAB
     Route: 065
  44. OMALIZUMAB [Suspect]
     Active Substance: OMALIZUMAB
     Route: 065
  45. OMALIZUMAB [Suspect]
     Active Substance: OMALIZUMAB
     Route: 065
  46. OMALIZUMAB [Suspect]
     Active Substance: OMALIZUMAB
     Route: 065
  47. OMALIZUMAB [Suspect]
     Active Substance: OMALIZUMAB
     Route: 065
  48. OMALIZUMAB [Suspect]
     Active Substance: OMALIZUMAB
     Route: 065
  49. OMALIZUMAB [Suspect]
     Active Substance: OMALIZUMAB
     Route: 065
  50. OMALIZUMAB [Suspect]
     Active Substance: OMALIZUMAB
     Route: 065
  51. OMALIZUMAB [Suspect]
     Active Substance: OMALIZUMAB
     Route: 065
  52. OMALIZUMAB [Suspect]
     Active Substance: OMALIZUMAB
     Dosage: 200 MG, QD (100 MG, BID, CAPSULE)
     Route: 065
  53. OMALIZUMAB [Suspect]
     Active Substance: OMALIZUMAB
     Dosage: 200 MG, QD (100 MG, BID, CAPSULE)
     Route: 065
  54. OMALIZUMAB [Suspect]
     Active Substance: OMALIZUMAB
     Route: 065
  55. OMALIZUMAB [Suspect]
     Active Substance: OMALIZUMAB
     Route: 065
  56. OMALIZUMAB [Suspect]
     Active Substance: OMALIZUMAB
     Route: 065
  57. OMALIZUMAB [Suspect]
     Active Substance: OMALIZUMAB
     Route: 065
  58. CYCLOSPORINE [Suspect]
     Active Substance: CYCLOSPORINE
     Indication: Product used for unknown indication
     Route: 065
  59. CYCLOSPORINE [Suspect]
     Active Substance: CYCLOSPORINE
     Route: 065
  60. CYCLOSPORINE [Suspect]
     Active Substance: CYCLOSPORINE
     Route: 065
  61. CYCLOSPORINE [Suspect]
     Active Substance: CYCLOSPORINE
     Route: 065
  62. CYCLOSPORINE [Suspect]
     Active Substance: CYCLOSPORINE
     Route: 065
  63. CYCLOSPORINE [Suspect]
     Active Substance: CYCLOSPORINE
     Route: 065
  64. CYCLOSPORINE [Suspect]
     Active Substance: CYCLOSPORINE
     Route: 065
  65. CYCLOSPORINE [Suspect]
     Active Substance: CYCLOSPORINE
     Route: 065
  66. CYCLOSPORINE [Suspect]
     Active Substance: CYCLOSPORINE
     Route: 065
  67. CYCLOSPORINE [Suspect]
     Active Substance: CYCLOSPORINE
     Route: 065
  68. CYCLOSPORINE [Suspect]
     Active Substance: CYCLOSPORINE
     Route: 065
  69. CYCLOSPORINE [Suspect]
     Active Substance: CYCLOSPORINE
     Route: 065
  70. CYCLOSPORINE [Suspect]
     Active Substance: CYCLOSPORINE
     Route: 065
  71. CYCLOSPORINE [Suspect]
     Active Substance: CYCLOSPORINE
     Route: 065
  72. CYCLOSPORINE [Suspect]
     Active Substance: CYCLOSPORINE
     Route: 065
  73. CYCLOSPORINE [Suspect]
     Active Substance: CYCLOSPORINE
     Route: 065
  74. CYCLOSPORINE [Suspect]
     Active Substance: CYCLOSPORINE
     Route: 065
  75. CYCLOSPORINE [Suspect]
     Active Substance: CYCLOSPORINE
     Route: 065
  76. CYCLOSPORINE [Suspect]
     Active Substance: CYCLOSPORINE
     Route: 065
  77. CYCLOSPORINE [Suspect]
     Active Substance: CYCLOSPORINE
     Route: 065
  78. CYCLOSPORINE [Suspect]
     Active Substance: CYCLOSPORINE
     Route: 065
  79. CYCLOSPORINE [Suspect]
     Active Substance: CYCLOSPORINE
     Route: 065
  80. CYCLOSPORINE [Suspect]
     Active Substance: CYCLOSPORINE
     Route: 065
  81. CYCLOSPORINE [Suspect]
     Active Substance: CYCLOSPORINE
     Route: 065
  82. CYCLOSPORINE [Suspect]
     Active Substance: CYCLOSPORINE
     Route: 065
  83. CYCLOSPORINE [Suspect]
     Active Substance: CYCLOSPORINE
     Route: 065
  84. CYCLOSPORINE [Suspect]
     Active Substance: CYCLOSPORINE
     Route: 065
  85. CYCLOSPORINE [Suspect]
     Active Substance: CYCLOSPORINE
     Route: 065
  86. CYCLOSPORINE [Suspect]
     Active Substance: CYCLOSPORINE
     Route: 065
  87. CYCLOSPORINE [Suspect]
     Active Substance: CYCLOSPORINE
     Route: 065
  88. CYCLOSPORINE [Suspect]
     Active Substance: CYCLOSPORINE
     Route: 065
  89. CYCLOSPORINE [Suspect]
     Active Substance: CYCLOSPORINE
     Route: 065
  90. CYCLOSPORINE [Suspect]
     Active Substance: CYCLOSPORINE
     Route: 065
  91. CYCLOSPORINE [Suspect]
     Active Substance: CYCLOSPORINE
     Route: 065
  92. CYCLOSPORINE [Suspect]
     Active Substance: CYCLOSPORINE
     Route: 065
  93. PREDNISOLONE [Suspect]
     Active Substance: PREDNISOLONE
     Indication: Chronic spontaneous urticaria
     Route: 065
  94. PREDNISOLONE [Suspect]
     Active Substance: PREDNISOLONE
     Route: 065
  95. SULFASALAZINE [Suspect]
     Active Substance: SULFASALAZINE
     Indication: Chronic spontaneous urticaria
     Route: 050
  96. SULFASALAZINE [Suspect]
     Active Substance: SULFASALAZINE
     Route: 050
  97. SULFASALAZINE [Suspect]
     Active Substance: SULFASALAZINE
     Route: 050
  98. SULFASALAZINE [Suspect]
     Active Substance: SULFASALAZINE
     Route: 050
  99. AZATHIOPRINE [Suspect]
     Active Substance: AZATHIOPRINE
     Indication: Product used for unknown indication
     Route: 050
  100. AZATHIOPRINE [Suspect]
     Active Substance: AZATHIOPRINE
     Route: 050
  101. AZATHIOPRINE [Suspect]
     Active Substance: AZATHIOPRINE
     Route: 065
  102. AZATHIOPRINE [Suspect]
     Active Substance: AZATHIOPRINE
     Route: 065
  103. AZATHIOPRINE [Suspect]
     Active Substance: AZATHIOPRINE
     Route: 065
  104. AZATHIOPRINE [Suspect]
     Active Substance: AZATHIOPRINE
     Route: 050
  105. AZATHIOPRINE [Suspect]
     Active Substance: AZATHIOPRINE
     Route: 050
  106. AZATHIOPRINE [Suspect]
     Active Substance: AZATHIOPRINE
     Route: 050
  107. AZATHIOPRINE [Suspect]
     Active Substance: AZATHIOPRINE
     Route: 050
  108. AZATHIOPRINE [Suspect]
     Active Substance: AZATHIOPRINE
     Route: 050
  109. AZATHIOPRINE [Suspect]
     Active Substance: AZATHIOPRINE
     Route: 050
  110. AZATHIOPRINE [Suspect]
     Active Substance: AZATHIOPRINE
     Route: 050
  111. AZATHIOPRINE [Suspect]
     Active Substance: AZATHIOPRINE
     Route: 050
  112. AZATHIOPRINE [Suspect]
     Active Substance: AZATHIOPRINE
     Route: 050
  113. AZATHIOPRINE [Suspect]
     Active Substance: AZATHIOPRINE
     Route: 050
  114. AZATHIOPRINE [Suspect]
     Active Substance: AZATHIOPRINE
     Route: 050
  115. AZATHIOPRINE [Suspect]
     Active Substance: AZATHIOPRINE
     Route: 050
  116. AZATHIOPRINE [Suspect]
     Active Substance: AZATHIOPRINE
     Route: 050
  117. AZATHIOPRINE [Suspect]
     Active Substance: AZATHIOPRINE
     Route: 050
  118. AZATHIOPRINE [Suspect]
     Active Substance: AZATHIOPRINE
     Route: 050
  119. AZATHIOPRINE [Suspect]
     Active Substance: AZATHIOPRINE
     Route: 050
  120. AZATHIOPRINE [Suspect]
     Active Substance: AZATHIOPRINE
     Route: 050
  121. AZATHIOPRINE [Suspect]
     Active Substance: AZATHIOPRINE
     Route: 050
  122. AZATHIOPRINE [Suspect]
     Active Substance: AZATHIOPRINE
     Route: 050
  123. AZATHIOPRINE [Suspect]
     Active Substance: AZATHIOPRINE
     Route: 050
  124. AZATHIOPRINE [Suspect]
     Active Substance: AZATHIOPRINE
     Route: 050
  125. AZATHIOPRINE [Suspect]
     Active Substance: AZATHIOPRINE
     Route: 050
  126. AZATHIOPRINE [Suspect]
     Active Substance: AZATHIOPRINE
     Route: 050
  127. AZATHIOPRINE [Suspect]
     Active Substance: AZATHIOPRINE
     Route: 050
  128. AZATHIOPRINE [Suspect]
     Active Substance: AZATHIOPRINE
     Route: 050
  129. AZATHIOPRINE [Suspect]
     Active Substance: AZATHIOPRINE
     Route: 050
  130. AZATHIOPRINE [Suspect]
     Active Substance: AZATHIOPRINE
     Route: 050
  131. AZATHIOPRINE [Suspect]
     Active Substance: AZATHIOPRINE
     Route: 050
  132. AZATHIOPRINE [Suspect]
     Active Substance: AZATHIOPRINE
     Route: 050
  133. AZATHIOPRINE [Suspect]
     Active Substance: AZATHIOPRINE
     Route: 050
  134. AZATHIOPRINE [Suspect]
     Active Substance: AZATHIOPRINE
     Route: 050
  135. DAPSONE [Suspect]
     Active Substance: DAPSONE
     Indication: Product used for unknown indication
     Route: 065
  136. DAPSONE [Suspect]
     Active Substance: DAPSONE
     Route: 065
  137. DAPSONE [Suspect]
     Active Substance: DAPSONE
     Route: 065
  138. DAPSONE [Suspect]
     Active Substance: DAPSONE
     Route: 065
  139. DAPSONE [Suspect]
     Active Substance: DAPSONE
     Route: 065
  140. DAPSONE [Suspect]
     Active Substance: DAPSONE
     Route: 065
  141. DAPSONE [Suspect]
     Active Substance: DAPSONE
     Route: 065
  142. DAPSONE [Suspect]
     Active Substance: DAPSONE
     Route: 065
  143. DAPSONE [Suspect]
     Active Substance: DAPSONE
     Route: 065
  144. DAPSONE [Suspect]
     Active Substance: DAPSONE
     Route: 065
  145. DAPSONE [Suspect]
     Active Substance: DAPSONE
     Route: 065
  146. DAPSONE [Suspect]
     Active Substance: DAPSONE
     Route: 065
  147. DAPSONE [Suspect]
     Active Substance: DAPSONE
     Route: 065
  148. DAPSONE [Suspect]
     Active Substance: DAPSONE
     Route: 065
  149. DAPSONE [Suspect]
     Active Substance: DAPSONE
     Route: 065
  150. DAPSONE [Suspect]
     Active Substance: DAPSONE
     Route: 065
  151. DAPSONE [Suspect]
     Active Substance: DAPSONE
     Route: 065
  152. DAPSONE [Suspect]
     Active Substance: DAPSONE
     Route: 065
  153. DAPSONE [Suspect]
     Active Substance: DAPSONE
     Route: 065
  154. DAPSONE [Suspect]
     Active Substance: DAPSONE
     Route: 065
  155. DAPSONE [Suspect]
     Active Substance: DAPSONE
     Route: 065
  156. DAPSONE [Suspect]
     Active Substance: DAPSONE
     Route: 065
  157. DAPSONE [Suspect]
     Active Substance: DAPSONE
     Route: 065
  158. DAPSONE [Suspect]
     Active Substance: DAPSONE
     Route: 065
  159. DAPSONE [Suspect]
     Active Substance: DAPSONE
     Route: 065
  160. DAPSONE [Suspect]
     Active Substance: DAPSONE
     Route: 065
  161. DAPSONE [Suspect]
     Active Substance: DAPSONE
     Route: 065
  162. DAPSONE [Suspect]
     Active Substance: DAPSONE
     Route: 065
  163. DAPSONE [Suspect]
     Active Substance: DAPSONE
     Route: 065
  164. DAPSONE [Suspect]
     Active Substance: DAPSONE
     Route: 065
  165. DAPSONE [Suspect]
     Active Substance: DAPSONE
     Route: 065
  166. DAPSONE [Suspect]
     Active Substance: DAPSONE
     Route: 065
  167. DAPSONE [Suspect]
     Active Substance: DAPSONE
     Route: 065
  168. DAPSONE [Suspect]
     Active Substance: DAPSONE
     Route: 065
  169. DAPSONE [Suspect]
     Active Substance: DAPSONE
     Route: 065
  170. DAPSONE [Suspect]
     Active Substance: DAPSONE
     Route: 065
  171. DAPSONE [Suspect]
     Active Substance: DAPSONE
     Route: 065
  172. DAPSONE [Suspect]
     Active Substance: DAPSONE
     Route: 065
  173. DAPSONE [Suspect]
     Active Substance: DAPSONE
     Route: 065
  174. DAPSONE [Suspect]
     Active Substance: DAPSONE
     Route: 065
  175. DAPSONE [Suspect]
     Active Substance: DAPSONE
     Route: 065
  176. DAPSONE [Suspect]
     Active Substance: DAPSONE
     Route: 065
  177. DAPSONE [Suspect]
     Active Substance: DAPSONE
     Route: 065
  178. DAPSONE [Suspect]
     Active Substance: DAPSONE
     Route: 065
  179. DAPSONE [Suspect]
     Active Substance: DAPSONE
     Route: 065
  180. IMURAN [Suspect]
     Active Substance: AZATHIOPRINE
     Indication: Product used for unknown indication
     Route: 065
  181. IMURAN [Suspect]
     Active Substance: AZATHIOPRINE
     Route: 065
  182. ENOXAPARIN [Concomitant]
     Active Substance: ENOXAPARIN
     Indication: Autoimmune hypothyroidism
     Route: 065
  183. ENOXAPARIN [Concomitant]
     Active Substance: ENOXAPARIN
     Indication: Antiphospholipid syndrome
     Route: 065
  184. ENOXAPARIN [Concomitant]
     Active Substance: ENOXAPARIN
  185. ENOXAPARIN [Concomitant]
     Active Substance: ENOXAPARIN
  186. ENOXAPARIN [Concomitant]
     Active Substance: ENOXAPARIN
     Route: 065
  187. ENOXAPARIN [Concomitant]
     Active Substance: ENOXAPARIN
     Route: 065
  188. ENOXAPARIN [Concomitant]
     Active Substance: ENOXAPARIN
     Route: 065
  189. ENOXAPARIN [Concomitant]
     Active Substance: ENOXAPARIN
     Route: 065
  190. ENOXAPARIN [Concomitant]
     Active Substance: ENOXAPARIN
     Route: 065
  191. ENOXAPARIN [Concomitant]
     Active Substance: ENOXAPARIN
     Route: 065
  192. ENOXAPARIN [Concomitant]
     Active Substance: ENOXAPARIN
     Route: 065
  193. ENOXAPARIN [Concomitant]
     Active Substance: ENOXAPARIN
     Route: 065
  194. ENOXAPARIN [Concomitant]
     Active Substance: ENOXAPARIN
     Route: 065
  195. ENOXAPARIN [Concomitant]
     Active Substance: ENOXAPARIN
     Route: 065
  196. ENOXAPARIN [Concomitant]
     Active Substance: ENOXAPARIN
     Route: 065
  197. ENOXAPARIN [Concomitant]
     Active Substance: ENOXAPARIN
     Route: 065
  198. ENOXAPARIN [Concomitant]
     Active Substance: ENOXAPARIN
     Route: 065
  199. ENOXAPARIN [Concomitant]
     Active Substance: ENOXAPARIN
     Route: 065
  200. ENOXAPARIN [Concomitant]
     Active Substance: ENOXAPARIN
     Route: 065
  201. ENOXAPARIN [Concomitant]
     Active Substance: ENOXAPARIN
     Route: 065
  202. ENOXAPARIN [Concomitant]
     Active Substance: ENOXAPARIN
     Route: 065
  203. ENOXAPARIN [Concomitant]
     Active Substance: ENOXAPARIN
     Route: 065
  204. ENOXAPARIN [Concomitant]
     Active Substance: ENOXAPARIN
     Route: 065
  205. ENOXAPARIN [Concomitant]
     Active Substance: ENOXAPARIN
     Route: 065
  206. ENOXAPARIN [Concomitant]
     Active Substance: ENOXAPARIN
     Route: 065
  207. ENOXAPARIN [Concomitant]
     Active Substance: ENOXAPARIN
     Route: 065
  208. ENOXAPARIN [Concomitant]
     Active Substance: ENOXAPARIN
     Route: 065
  209. ENOXAPARIN [Concomitant]
     Active Substance: ENOXAPARIN
     Route: 065
  210. ENOXAPARIN [Concomitant]
     Active Substance: ENOXAPARIN
     Route: 065
  211. ENOXAPARIN [Concomitant]
     Active Substance: ENOXAPARIN
     Route: 065
  212. ENOXAPARIN [Concomitant]
     Active Substance: ENOXAPARIN
     Route: 065
  213. ENOXAPARIN [Concomitant]
     Active Substance: ENOXAPARIN
     Route: 065
  214. ENOXAPARIN [Concomitant]
     Active Substance: ENOXAPARIN
     Route: 065
  215. ENOXAPARIN [Concomitant]
     Active Substance: ENOXAPARIN
     Route: 065
  216. ENOXAPARIN [Concomitant]
     Active Substance: ENOXAPARIN
     Route: 065
  217. ENOXAPARIN [Concomitant]
     Active Substance: ENOXAPARIN
     Route: 065
  218. ENOXAPARIN [Concomitant]
     Active Substance: ENOXAPARIN
     Route: 065
  219. ENOXAPARIN [Concomitant]
     Active Substance: ENOXAPARIN
     Route: 065
  220. ENOXAPARIN [Concomitant]
     Active Substance: ENOXAPARIN
     Route: 065
  221. ENOXAPARIN [Concomitant]
     Active Substance: ENOXAPARIN
     Route: 065
  222. ENOXAPARIN [Concomitant]
     Active Substance: ENOXAPARIN
     Route: 065
  223. ENOXAPARIN [Concomitant]
     Active Substance: ENOXAPARIN
     Route: 065
  224. ENOXAPARIN [Concomitant]
     Active Substance: ENOXAPARIN
     Route: 065
  225. ENOXAPARIN [Concomitant]
     Active Substance: ENOXAPARIN
     Route: 065
  226. ENOXAPARIN [Concomitant]
     Active Substance: ENOXAPARIN
     Route: 065
  227. ENOXAPARIN [Concomitant]
     Active Substance: ENOXAPARIN
     Route: 065
  228. ENOXAPARIN [Concomitant]
     Active Substance: ENOXAPARIN
     Route: 065
  229. ENOXAPARIN [Concomitant]
     Active Substance: ENOXAPARIN
     Route: 065
  230. ENOXAPARIN [Concomitant]
     Active Substance: ENOXAPARIN
     Route: 065
  231. ENOXAPARIN [Concomitant]
     Active Substance: ENOXAPARIN
     Route: 065
  232. ENOXAPARIN [Concomitant]
     Active Substance: ENOXAPARIN
     Route: 065
  233. ENOXAPARIN [Concomitant]
     Active Substance: ENOXAPARIN
     Route: 065
  234. ENOXAPARIN [Concomitant]
     Active Substance: ENOXAPARIN
     Route: 065
  235. ENOXAPARIN [Concomitant]
     Active Substance: ENOXAPARIN
     Route: 065
  236. ENOXAPARIN [Concomitant]
     Active Substance: ENOXAPARIN
     Route: 065
  237. ENOXAPARIN [Concomitant]
     Active Substance: ENOXAPARIN
     Route: 065
  238. ENOXAPARIN [Concomitant]
     Active Substance: ENOXAPARIN
     Route: 065
  239. ENOXAPARIN [Concomitant]
     Active Substance: ENOXAPARIN
     Route: 065
  240. ENOXAPARIN [Concomitant]
     Active Substance: ENOXAPARIN
     Route: 065
  241. ENOXAPARIN [Concomitant]
     Active Substance: ENOXAPARIN
     Route: 065
  242. ENOXAPARIN [Concomitant]
     Active Substance: ENOXAPARIN
     Route: 065
  243. ENOXAPARIN [Concomitant]
     Active Substance: ENOXAPARIN
     Route: 065
  244. ENOXAPARIN [Concomitant]
     Active Substance: ENOXAPARIN
     Route: 065
  245. ENOXAPARIN [Concomitant]
     Active Substance: ENOXAPARIN
     Route: 065
  246. ENOXAPARIN [Concomitant]
     Active Substance: ENOXAPARIN
     Route: 065
  247. ENOXAPARIN [Concomitant]
     Active Substance: ENOXAPARIN
     Route: 065
  248. ENOXAPARIN [Concomitant]
     Active Substance: ENOXAPARIN
     Route: 065
  249. ENOXAPARIN [Concomitant]
     Active Substance: ENOXAPARIN
     Route: 065
  250. ENOXAPARIN [Concomitant]
     Active Substance: ENOXAPARIN
     Route: 065
  251. ENOXAPARIN [Concomitant]
     Active Substance: ENOXAPARIN
     Route: 065
  252. ENOXAPARIN [Concomitant]
     Active Substance: ENOXAPARIN
     Route: 065
  253. ENOXAPARIN [Concomitant]
     Active Substance: ENOXAPARIN
     Route: 065
  254. ENOXAPARIN [Concomitant]
     Active Substance: ENOXAPARIN
     Route: 065
  255. ENOXAPARIN [Concomitant]
     Active Substance: ENOXAPARIN
     Route: 065
  256. ENOXAPARIN [Concomitant]
     Active Substance: ENOXAPARIN
     Route: 065
  257. ENOXAPARIN [Concomitant]
     Active Substance: ENOXAPARIN
     Route: 065
  258. ENOXAPARIN [Concomitant]
     Active Substance: ENOXAPARIN
     Route: 065
  259. ENOXAPARIN [Concomitant]
     Active Substance: ENOXAPARIN
     Route: 065
  260. ENOXAPARIN [Concomitant]
     Active Substance: ENOXAPARIN
     Route: 065
  261. ENOXAPARIN [Concomitant]
     Active Substance: ENOXAPARIN
     Route: 065
  262. ENOXAPARIN [Concomitant]
     Active Substance: ENOXAPARIN
     Route: 065
  263. ENOXAPARIN [Concomitant]
     Active Substance: ENOXAPARIN
     Route: 065
  264. ENOXAPARIN [Concomitant]
     Active Substance: ENOXAPARIN
     Route: 065
  265. ENOXAPARIN [Concomitant]
     Active Substance: ENOXAPARIN
     Route: 065
  266. ENOXAPARIN [Concomitant]
     Active Substance: ENOXAPARIN
     Route: 065
  267. ENOXAPARIN [Concomitant]
     Active Substance: ENOXAPARIN
     Route: 065
  268. ENOXAPARIN [Concomitant]
     Active Substance: ENOXAPARIN
     Route: 065
  269. ENOXAPARIN [Concomitant]
     Active Substance: ENOXAPARIN
     Route: 065
  270. ENOXAPARIN [Concomitant]
     Active Substance: ENOXAPARIN
     Route: 065
  271. ENOXAPARIN [Concomitant]
     Active Substance: ENOXAPARIN
     Route: 065
  272. ENOXAPARIN [Concomitant]
     Active Substance: ENOXAPARIN
     Route: 065
  273. ENOXAPARIN [Concomitant]
     Active Substance: ENOXAPARIN
     Route: 065
  274. ENOXAPARIN [Concomitant]
     Active Substance: ENOXAPARIN
     Route: 065
  275. ENOXAPARIN [Concomitant]
     Active Substance: ENOXAPARIN
     Route: 065
  276. ENOXAPARIN [Concomitant]
     Active Substance: ENOXAPARIN
     Route: 065
  277. ENOXAPARIN [Concomitant]
     Active Substance: ENOXAPARIN
     Route: 065
  278. ENOXAPARIN [Concomitant]
     Active Substance: ENOXAPARIN
     Route: 065
  279. ENOXAPARIN [Concomitant]
     Active Substance: ENOXAPARIN
     Route: 065
  280. ENOXAPARIN [Concomitant]
     Active Substance: ENOXAPARIN
     Route: 065
  281. ENOXAPARIN [Concomitant]
     Active Substance: ENOXAPARIN
     Route: 065
  282. ENOXAPARIN [Concomitant]
     Active Substance: ENOXAPARIN
     Route: 065
  283. ENOXAPARIN [Concomitant]
     Active Substance: ENOXAPARIN
     Route: 065
  284. ENOXAPARIN [Concomitant]
     Active Substance: ENOXAPARIN
     Route: 065
  285. ENOXAPARIN [Concomitant]
     Active Substance: ENOXAPARIN
     Route: 065
  286. ENOXAPARIN [Concomitant]
     Active Substance: ENOXAPARIN
     Route: 065
  287. ENOXAPARIN [Concomitant]
     Active Substance: ENOXAPARIN
  288. ENOXAPARIN [Concomitant]
     Active Substance: ENOXAPARIN
  289. ENOXAPARIN [Concomitant]
     Active Substance: ENOXAPARIN
  290. ENOXAPARIN [Concomitant]
     Active Substance: ENOXAPARIN
  291. ENOXAPARIN [Concomitant]
     Active Substance: ENOXAPARIN
  292. ENOXAPARIN [Concomitant]
     Active Substance: ENOXAPARIN
  293. ENOXAPARIN [Concomitant]
     Active Substance: ENOXAPARIN
  294. ENOXAPARIN [Concomitant]
     Active Substance: ENOXAPARIN
  295. ENOXAPARIN [Concomitant]
     Active Substance: ENOXAPARIN
  296. ENOXAPARIN [Concomitant]
     Active Substance: ENOXAPARIN
  297. ENOXAPARIN [Concomitant]
     Active Substance: ENOXAPARIN
  298. ENOXAPARIN [Concomitant]
     Active Substance: ENOXAPARIN
  299. ENOXAPARIN [Concomitant]
     Active Substance: ENOXAPARIN
  300. ENOXAPARIN [Concomitant]
     Active Substance: ENOXAPARIN
  301. ENOXAPARIN [Concomitant]
     Active Substance: ENOXAPARIN
  302. ENOXAPARIN [Concomitant]
     Active Substance: ENOXAPARIN
  303. ENOXAPARIN [Concomitant]
     Active Substance: ENOXAPARIN
  304. ENOXAPARIN [Concomitant]
     Active Substance: ENOXAPARIN
  305. ENOXAPARIN [Concomitant]
     Active Substance: ENOXAPARIN
  306. ENOXAPARIN [Concomitant]
     Active Substance: ENOXAPARIN
  307. ENOXAPARIN [Concomitant]
     Active Substance: ENOXAPARIN
  308. ENOXAPARIN [Concomitant]
     Active Substance: ENOXAPARIN
  309. ENOXAPARIN [Concomitant]
     Active Substance: ENOXAPARIN
  310. ENOXAPARIN [Concomitant]
     Active Substance: ENOXAPARIN
  311. ENOXAPARIN [Concomitant]
     Active Substance: ENOXAPARIN
  312. ENOXAPARIN [Concomitant]
     Active Substance: ENOXAPARIN
  313. ENOXAPARIN [Concomitant]
     Active Substance: ENOXAPARIN
  314. ENOXAPARIN [Concomitant]
     Active Substance: ENOXAPARIN
  315. ENOXAPARIN [Concomitant]
     Active Substance: ENOXAPARIN
  316. ENOXAPARIN [Concomitant]
     Active Substance: ENOXAPARIN
  317. ENOXAPARIN [Concomitant]
     Active Substance: ENOXAPARIN
  318. ENOXAPARIN [Concomitant]
     Active Substance: ENOXAPARIN
  319. ENOXAPARIN [Concomitant]
     Active Substance: ENOXAPARIN
  320. ENOXAPARIN [Concomitant]
     Active Substance: ENOXAPARIN
  321. ENOXAPARIN [Concomitant]
     Active Substance: ENOXAPARIN
  322. ENOXAPARIN [Concomitant]
     Active Substance: ENOXAPARIN
  323. ENOXAPARIN [Concomitant]
     Active Substance: ENOXAPARIN
  324. ENOXAPARIN [Concomitant]
     Active Substance: ENOXAPARIN
  325. ENOXAPARIN [Concomitant]
     Active Substance: ENOXAPARIN
  326. ENOXAPARIN [Concomitant]
     Active Substance: ENOXAPARIN
  327. ENOXAPARIN [Concomitant]
     Active Substance: ENOXAPARIN
  328. ENOXAPARIN [Concomitant]
     Active Substance: ENOXAPARIN
  329. ENOXAPARIN [Concomitant]
     Active Substance: ENOXAPARIN
  330. ENOXAPARIN [Concomitant]
     Active Substance: ENOXAPARIN
  331. ENOXAPARIN [Concomitant]
     Active Substance: ENOXAPARIN
  332. ENOXAPARIN [Concomitant]
     Active Substance: ENOXAPARIN
  333. ENOXAPARIN [Concomitant]
     Active Substance: ENOXAPARIN
  334. ENOXAPARIN [Concomitant]
     Active Substance: ENOXAPARIN
  335. ENOXAPARIN [Concomitant]
     Active Substance: ENOXAPARIN
  336. ENOXAPARIN [Concomitant]
     Active Substance: ENOXAPARIN
  337. ENOXAPARIN [Concomitant]
     Active Substance: ENOXAPARIN
  338. ENOXAPARIN [Concomitant]
     Active Substance: ENOXAPARIN
  339. ENOXAPARIN [Concomitant]
     Active Substance: ENOXAPARIN
  340. ENOXAPARIN [Concomitant]
     Active Substance: ENOXAPARIN
  341. ENOXAPARIN [Concomitant]
     Active Substance: ENOXAPARIN
  342. ENOXAPARIN [Concomitant]
     Active Substance: ENOXAPARIN
  343. ENOXAPARIN [Concomitant]
     Active Substance: ENOXAPARIN
  344. ENOXAPARIN [Concomitant]
     Active Substance: ENOXAPARIN
  345. ENOXAPARIN [Concomitant]
     Active Substance: ENOXAPARIN
  346. ENOXAPARIN [Concomitant]
     Active Substance: ENOXAPARIN
  347. ENOXAPARIN [Concomitant]
     Active Substance: ENOXAPARIN
  348. ENOXAPARIN [Concomitant]
     Active Substance: ENOXAPARIN
  349. ENOXAPARIN [Concomitant]
     Active Substance: ENOXAPARIN
  350. ENOXAPARIN [Concomitant]
     Active Substance: ENOXAPARIN
  351. ENOXAPARIN [Concomitant]
     Active Substance: ENOXAPARIN
  352. ENOXAPARIN [Concomitant]
     Active Substance: ENOXAPARIN
  353. ENOXAPARIN [Concomitant]
     Active Substance: ENOXAPARIN
  354. ENOXAPARIN [Concomitant]
     Active Substance: ENOXAPARIN
  355. ENOXAPARIN [Concomitant]
     Active Substance: ENOXAPARIN
  356. ENOXAPARIN [Concomitant]
     Active Substance: ENOXAPARIN
  357. ENOXAPARIN [Concomitant]
     Active Substance: ENOXAPARIN
  358. ENOXAPARIN [Concomitant]
     Active Substance: ENOXAPARIN
  359. ENOXAPARIN [Concomitant]
     Active Substance: ENOXAPARIN
  360. ENOXAPARIN [Concomitant]
     Active Substance: ENOXAPARIN
  361. ENOXAPARIN [Concomitant]
     Active Substance: ENOXAPARIN
  362. ENOXAPARIN [Concomitant]
     Active Substance: ENOXAPARIN
  363. ENOXAPARIN [Concomitant]
     Active Substance: ENOXAPARIN
  364. ENOXAPARIN [Concomitant]
     Active Substance: ENOXAPARIN
  365. ENOXAPARIN [Concomitant]
     Active Substance: ENOXAPARIN
  366. ENOXAPARIN [Concomitant]
     Active Substance: ENOXAPARIN
  367. ENOXAPARIN [Concomitant]
     Active Substance: ENOXAPARIN
  368. ENOXAPARIN [Concomitant]
     Active Substance: ENOXAPARIN
  369. ENOXAPARIN [Concomitant]
     Active Substance: ENOXAPARIN
  370. ENOXAPARIN [Concomitant]
     Active Substance: ENOXAPARIN
  371. ENOXAPARIN [Concomitant]
     Active Substance: ENOXAPARIN
  372. ENOXAPARIN [Concomitant]
     Active Substance: ENOXAPARIN
  373. ENOXAPARIN [Concomitant]
     Active Substance: ENOXAPARIN
  374. ENOXAPARIN [Concomitant]
     Active Substance: ENOXAPARIN
  375. ENOXAPARIN [Concomitant]
     Active Substance: ENOXAPARIN
  376. ENOXAPARIN [Concomitant]
     Active Substance: ENOXAPARIN
  377. ENOXAPARIN [Concomitant]
     Active Substance: ENOXAPARIN
  378. ENOXAPARIN [Concomitant]
     Active Substance: ENOXAPARIN
  379. ENOXAPARIN [Concomitant]
     Active Substance: ENOXAPARIN
  380. ENOXAPARIN [Concomitant]
     Active Substance: ENOXAPARIN
  381. ENOXAPARIN [Concomitant]
     Active Substance: ENOXAPARIN
  382. ENOXAPARIN [Concomitant]
     Active Substance: ENOXAPARIN
  383. ENOXAPARIN [Concomitant]
     Active Substance: ENOXAPARIN
  384. ENOXAPARIN [Concomitant]
     Active Substance: ENOXAPARIN
  385. ENOXAPARIN [Concomitant]
     Active Substance: ENOXAPARIN
  386. ENOXAPARIN [Concomitant]
     Active Substance: ENOXAPARIN
  387. ENOXAPARIN [Concomitant]
     Active Substance: ENOXAPARIN
  388. ENOXAPARIN [Concomitant]
     Active Substance: ENOXAPARIN
  389. ENOXAPARIN [Concomitant]
     Active Substance: ENOXAPARIN
  390. ENOXAPARIN [Concomitant]
     Active Substance: ENOXAPARIN
  391. ENOXAPARIN [Concomitant]
     Active Substance: ENOXAPARIN
  392. ENOXAPARIN [Concomitant]
     Active Substance: ENOXAPARIN
  393. ENOXAPARIN [Concomitant]
     Active Substance: ENOXAPARIN
  394. ENOXAPARIN [Concomitant]
     Active Substance: ENOXAPARIN
  395. ENOXAPARIN [Concomitant]
     Active Substance: ENOXAPARIN
  396. ENOXAPARIN [Concomitant]
     Active Substance: ENOXAPARIN
  397. ENOXAPARIN [Concomitant]
     Active Substance: ENOXAPARIN
  398. ENOXAPARIN [Concomitant]
     Active Substance: ENOXAPARIN
  399. ENOXAPARIN [Concomitant]
     Active Substance: ENOXAPARIN
  400. ENOXAPARIN [Concomitant]
     Active Substance: ENOXAPARIN
  401. ENOXAPARIN [Concomitant]
     Active Substance: ENOXAPARIN

REACTIONS (6)
  - Angioedema [Unknown]
  - Treatment failure [Unknown]
  - Mental disorder [Unknown]
  - Chronic spontaneous urticaria [Unknown]
  - Disease recurrence [Unknown]
  - Emotional distress [Unknown]
